FAERS Safety Report 5482630-1 (Version None)
Quarter: 2007Q4

REPORT INFORMATION
  Report Type: 
  Country: None (occurrence: None)
  Receive Date: 20071011
  Receipt Date: 20070827
  Transmission Date: 20080405
  Serious: No
  Sender: FDA-Public Use
  Company Number: A0676666A

PATIENT
  Age: 30 Year
  Sex: Female

DRUGS (9)
  1. TYKERB [Suspect]
     Indication: BREAST CANCER
     Dosage: 5TAB PER DAY
     Route: 048
     Dates: start: 20070822
  2. XELODA [Concomitant]
  3. PRILOSEC [Concomitant]
  4. ATIVAN [Concomitant]
  5. FOLIC ACID [Concomitant]
  6. CELEXA [Concomitant]
  7. BENTYL [Concomitant]
  8. DILANTIN [Concomitant]
  9. DECADRON [Concomitant]

REACTIONS (3)
  - DIARRHOEA [None]
  - DRY SKIN [None]
  - FATIGUE [None]
